FAERS Safety Report 5525251-4 (Version None)
Quarter: 2007Q4

REPORT INFORMATION
  Report Type: 
  Country: None (occurrence: None)
  Receive Date: 20071119
  Receipt Date: 20071119
  Transmission Date: 20080405
  Serious: Yes (Hospitalization)
  Sender: FDA-Public Use
  Company Number: None

PATIENT
  Sex: Female

DRUGS (9)
  1. REVLIMID [Suspect]
     Indication: MULTIPLE MYELOMA
     Dosage: 25MG DAILY 21D/28D PO
     Route: 048
  2. DEXAMETHASONE [Concomitant]
  3. AMITRIPTLINE HCL [Concomitant]
  4. RANITIDINE HCL [Concomitant]
  5. VICODIN [Concomitant]
  6. ZOCOR [Concomitant]
  7. LEXAPRO [Concomitant]
  8. PRILOSEC [Concomitant]
  9. ASPIRIN [Concomitant]

REACTIONS (6)
  - DEHYDRATION [None]
  - HERPES ZOSTER DISSEMINATED [None]
  - MUSCULOSKELETAL CHEST PAIN [None]
  - NAUSEA [None]
  - VOMITING [None]
  - WEIGHT DECREASED [None]
